FAERS Safety Report 8288973-0 (Version None)
Quarter: 2012Q2

REPORT INFORMATION
  Report Type: 
  Country: None (occurrence: None)
  Receive Date: 20120417
  Receipt Date: 20120409
  Transmission Date: 20120825
  Serious: Yes (Death, Other)
  Sender: FDA-Public Use
  Company Number: US-CELGENEUS-163-21880-10122327

PATIENT

DRUGS (4)
  1. RITUXIMAB [Suspect]
     Dosage: 375 MILLIGRAM/SQ. METER
     Route: 041
  2. REVLIMID [Suspect]
     Dosage: 10 MILLIGRAM
     Route: 048
  3. ALLOPURINOL [Concomitant]
     Dosage: 300 MILLIGRAM
     Route: 065
  4. REVLIMID [Suspect]
     Indication: CYTOGENETIC ABNORMALITY
     Dosage: DOSE -1: 5MG/DAY, DOSE -2: 2.5 MG/DAY
     Route: 048

REACTIONS (1)
  - BRONCHOPNEUMONIA [None]
